FAERS Safety Report 10610435 (Version 3)
Quarter: 2015Q1

REPORT INFORMATION
  Report Type: Report from Study
  Country: AU (occurrence: AU)
  Receive Date: 20141126
  Receipt Date: 20150122
  Transmission Date: 20150720
  Serious: Yes (Hospitalization, Other)
  Sender: FDA-Public Use
  Company Number: AU-GLAXOSMITHKLINE-B0953478C

PATIENT
  Age: 77 Year
  Sex: Male
  Weight: 67 kg

DRUGS (4)
  1. PAZOPANIB [Suspect]
     Active Substance: PAZOPANIB
     Indication: METASTATIC RENAL CELL CARCINOMA
     Route: 048
  2. DUODART [Concomitant]
     Active Substance: DUTASTERIDE\TAMSULOSIN
     Indication: URINARY RETENTION
     Route: 048
     Dates: start: 20120601
  3. EVEROLIMUS [Suspect]
     Active Substance: EVEROLIMUS
     Indication: METASTATIC RENAL CELL CARCINOMA
  4. OXYCONTIN [Concomitant]
     Active Substance: OXYCODONE HYDROCHLORIDE
     Indication: ANALGESIC THERAPY
     Route: 048
     Dates: start: 20120701, end: 20120904

REACTIONS (2)
  - Duodenitis [Recovered/Resolved]
  - Volvulus [Recovered/Resolved with Sequelae]

NARRATIVE: CASE EVENT DATE: 20140814
